FAERS Safety Report 23558869 (Version 1)
Quarter: 2024Q1

REPORT INFORMATION
  Report Type: Spontaneous
  Country: SE (occurrence: SE)
  Receive Date: 20240223
  Receipt Date: 20240223
  Transmission Date: 20240410
  Serious: Yes (Hospitalization, Other)
  Sender: FDA-Public Use
  Company Number: SE-SEMPA-2024-000813

PATIENT
  Age: 22 Year
  Sex: Female

DRUGS (2)
  1. NAPROXEN [Suspect]
     Active Substance: NAPROXEN
     Indication: Product used for unknown indication
     Dosage: 4 GRAM, 1 TOTAL
     Route: 065
     Dates: start: 20240123, end: 20240123
  2. ACETAMINOPHEN [Suspect]
     Active Substance: ACETAMINOPHEN
     Indication: Product used for unknown indication
     Dosage: 10 GRAM, 1 TOTAL
     Route: 065
     Dates: start: 20240123, end: 20240123

REACTIONS (7)
  - Hypokalaemia [Recovering/Resolving]
  - Intentional self-injury [Recovering/Resolving]
  - Diarrhoea [Recovering/Resolving]
  - Toxicity to various agents [Recovering/Resolving]
  - Transaminases increased [Recovering/Resolving]
  - Vomiting [Recovering/Resolving]
  - Cardiac murmur [Recovering/Resolving]

NARRATIVE: CASE EVENT DATE: 20240123
